FAERS Safety Report 7354351-1 (Version None)
Quarter: 2011Q1

REPORT INFORMATION
  Report Type: 
  Country: None (occurrence: None)
  Receive Date: 20110308
  Receipt Date: 20110228
  Transmission Date: 20110831
  Serious: Yes (Other)
  Sender: FDA-Public Use
  Company Number: 844097

PATIENT
  Age: 48 Year
  Sex: Male

DRUGS (3)
  1. (MORPHINE) [Concomitant]
  2. METHOTREXATE [Suspect]
     Indication: OROPHARYNGEAL CANCER STAGE IV
     Dosage: 200 MG MILLIGRAM(S)
  3. (THERAPEUTIC RADIOPHARMACEUTICALS) [Suspect]
     Indication: OROPHARYNGEAL CANCER STAGE IV
     Dosage: 66 GY IN 33 FRACTIONS

REACTIONS (4)
  - MUCOSAL INFLAMMATION [None]
  - EPIGLOTTIS ULCER [None]
  - EPIGLOTTIC OEDEMA [None]
  - SKIN EXFOLIATION [None]
